FAERS Safety Report 21372428 (Version 1)
Quarter: 2022Q3

REPORT INFORMATION
  Report Type: Report from Study
  Country: US (occurrence: US)
  Receive Date: 20220924
  Receipt Date: 20220924
  Transmission Date: 20221027
  Serious: Yes (Other)
  Sender: FDA-Public Use
  Company Number: US-NOVARTISTESTPH-NVSC2022US213424

PATIENT
  Age: 42 Year
  Sex: Female

DRUGS (1)
  1. GILENYA [Suspect]
     Active Substance: FINGOLIMOD HYDROCHLORIDE
     Indication: Multiple sclerosis
     Dosage: 0.5 MG, QD
     Route: 048
     Dates: start: 20220711, end: 20220728

REACTIONS (5)
  - Uveitis [Recovering/Resolving]
  - Eye irritation [Recovering/Resolving]
  - Photophobia [Recovering/Resolving]
  - Visual impairment [Recovering/Resolving]
  - Dry eye [Recovering/Resolving]

NARRATIVE: CASE EVENT DATE: 20220720
